FAERS Safety Report 10567698 (Version 1)
Quarter: 2014Q4

REPORT INFORMATION
  Report Type: Spontaneous
  Country: US (occurrence: None)
  Receive Date: 20141104
  Receipt Date: 20141104
  Transmission Date: 20150529
  Serious: Yes (Death)
  Sender: FDA-Public Use
  Company Number: 2014COV00144

PATIENT
  Age: 14 Day
  Sex: Male

DRUGS (2)
  1. DIGOXIN (DIGOXIN) UNKNOWN [Suspect]
     Active Substance: DIGOXIN
  2. MORPHINE (MORPHINE) (MORPHINE) [Suspect]
     Active Substance: MORPHINE
     Indication: SEDATION
     Route: 042

REACTIONS (6)
  - Cardiac disorder [None]
  - Overdose [None]
  - Toxicity to various agents [None]
  - Anoxia [None]
  - Death neonatal [None]
  - Accidental death [None]
